FAERS Safety Report 25147470 (Version 1)
Quarter: 2025Q2

REPORT INFORMATION
  Report Type: Report from Study
  Country: US (occurrence: US)
  Receive Date: 20250402
  Receipt Date: 20250402
  Transmission Date: 20250717
  Serious: Yes (Hospitalization)
  Sender: AMGEN
  Company Number: US-AMGEN-USASL2025060562

PATIENT
  Age: 84 Year
  Sex: Female

DRUGS (4)
  1. PROLIA [Suspect]
     Active Substance: DENOSUMAB
     Indication: Osteoporosis postmenopausal
     Dosage: 60 MILLIGRAM, Q6MO
     Route: 058
     Dates: start: 202306
  2. VITAMIN D [Concomitant]
     Active Substance: VITAMIN D NOS
  3. POTASSIUM [Concomitant]
     Active Substance: POTASSIUM
  4. MAGNESIUM [Concomitant]
     Active Substance: MAGNESIUM

REACTIONS (9)
  - Dehydration [Unknown]
  - Decreased appetite [Unknown]
  - Diarrhoea [Unknown]
  - Sinusitis [Unknown]
  - Paraesthesia [Unknown]
  - Muscle spasms [Unknown]
  - Vomiting [Unknown]
  - Blood calcium decreased [Unknown]
  - Pain in extremity [Unknown]

NARRATIVE: CASE EVENT DATE: 20250301
